FAERS Safety Report 23409851 (Version 1)
Quarter: 2024Q1

REPORT INFORMATION
  Report Type: Spontaneous
  Country: None (occurrence: IT)
  Receive Date: 20240117
  Receipt Date: 20240117
  Transmission Date: 20240409
  Serious: Yes (Other)
  Sender: FDA-Public Use
  Company Number: IT-B.Braun Medical Inc.-2151429

PATIENT
  Age: 68 Year
  Sex: Male

DRUGS (14)
  1. ACETAMINOPHEN [Suspect]
     Active Substance: ACETAMINOPHEN
  2. ASPIRIN [Suspect]
     Active Substance: ASPIRIN
  3. BISOPROLOL. [Suspect]
     Active Substance: BISOPROLOL FUMARATE
  4. CANDESARTAN [Suspect]
     Active Substance: CANDESARTAN
  5. HYDROCHLOROTHIAZIDE [Suspect]
     Active Substance: HYDROCHLOROTHIAZIDE
  6. CLOPIDOGREL [Suspect]
     Active Substance: CLOPIDOGREL BISULFATE
  7. FENTANYL [Suspect]
     Active Substance: FENTANYL\FENTANYL CITRATE
  8. INSULIN GLARGINE [Suspect]
     Active Substance: INSULIN GLARGINE
  9. MANIDIPINE [Suspect]
     Active Substance: MANIDIPINE
  10. PANTOPRAZOLE [Suspect]
     Active Substance: PANTOPRAZOLE
  11. PEMBROLIZUMAB [Suspect]
     Active Substance: PEMBROLIZUMAB
  12. SIMVASTATIN [Suspect]
     Active Substance: SIMVASTATIN
  13. NYSTATIN [Concomitant]
     Active Substance: NYSTATIN
  14. Sodiym hydrogen carbonate [Concomitant]

REACTIONS (2)
  - Immune-mediated thyroiditis [None]
  - Trichoglossia [None]
